FAERS Safety Report 5233728-4 (Version None)
Quarter: 2007Q1

REPORT INFORMATION
  Report Type: 
  Country: None (occurrence: None)
  Receive Date: 20061208
  Receipt Date: 20060428
  Transmission Date: 20070707
  Serious: Yes (Other)
  Sender: FDA-Public Use
  Company Number: 2006UW04765

PATIENT
  Age: 70 Year
  Sex: Male
  Weight: 63.502 kg

DRUGS (6)
  1. CRESTOR [Suspect]
     Indication: BLOOD CHOLESTEROL INCREASED
     Dosage: 5 MG PO
     Route: 048
     Dates: start: 20050901, end: 20060101
  2. CRESTOR [Suspect]
     Indication: BLOOD CHOLESTEROL INCREASED
     Dosage: 10 MG PO
     Route: 048
     Dates: start: 20060101
  3. CRESTOR [Suspect]
     Indication: BLOOD CHOLESTEROL INCREASED
     Dosage: PUT HIM BACK ON CRESTOR
     Dates: start: 20060101
  4. BENADRYL [Concomitant]
  5. CLONAZEPAM [Concomitant]
  6. OMEPRAZOLE [Concomitant]

REACTIONS (2)
  - NEURALGIA [None]
  - URTICARIA [None]
